FAERS Safety Report 8374274-9 (Version None)
Quarter: 2012Q2

REPORT INFORMATION
  Report Type: 
  Country: None (occurrence: None)
  Receive Date: 20120521
  Receipt Date: 20120512
  Transmission Date: 20120825
  Serious: Yes (Hospitalization, Disabling, Other)
  Sender: FDA-Public Use
  Company Number: BR-ASTRAZENECA-2012SE30885

PATIENT
  Sex: Male

DRUGS (4)
  1. ATENOLOL [Concomitant]
  2. GEVRAL [Concomitant]
  3. BRILINTA [Suspect]
     Route: 048
     Dates: start: 20110901
  4. PRESS PLUS [Concomitant]

REACTIONS (1)
  - THROMBOSIS [None]
